FAERS Safety Report 6141358-5 (Version None)
Quarter: 2009Q2

REPORT INFORMATION
  Report Type: 
  Country: None (occurrence: None)
  Receive Date: 20090402
  Receipt Date: 20090401
  Transmission Date: 20091009
  Serious: Yes (Hospitalization)
  Sender: FDA-Public Use
  Company Number: NL-ROCHE-624972

PATIENT

DRUGS (5)
  1. CAPECITABINE [Suspect]
     Indication: GASTRIC CANCER
     Dosage: GIVEN ON DAYS 1-14 EVERY 3 WEEKS.
     Route: 048
     Dates: start: 20090107, end: 20090301
  2. CISPLATIN [Suspect]
     Indication: GASTRIC CANCER
     Route: 042
     Dates: start: 20090107, end: 20090301
  3. CISPLATIN [Suspect]
     Dosage: DOSE REDUCED AND DELAYED.
     Route: 042
  4. EPIRUBICIN [Suspect]
     Indication: GASTRIC CANCER
     Dosage: GIVEN IMMEDIATELY PRIOR TO THE CISPLATIN
     Route: 042
     Dates: start: 20090107, end: 20090301
  5. EPIRUBICIN [Suspect]
     Dosage: DOSE REDUCED AND DELAYED.
     Route: 042

REACTIONS (1)
  - GASTRIC PERFORATION [None]
